FAERS Safety Report 23309245 (Version 1)
Quarter: 2023Q4

REPORT INFORMATION
  Report Type: Spontaneous
  Country: US (occurrence: US)
  Receive Date: 20231218
  Receipt Date: 20231218
  Transmission Date: 20240110
  Serious: Yes (Other)
  Sender: FDA-Public Use
  Company Number: US-SANDOZ-SDZ2023US068193

PATIENT
  Sex: Female

DRUGS (1)
  1. AMOXICILLIN AND CLAVULANATE POTASSIUM [Suspect]
     Active Substance: AMOXICILLIN\CLAVULANATE POTASSIUM
     Indication: Product used for unknown indication
     Dosage: UNK UNK, BID (875/125MG)
     Route: 065
     Dates: start: 20231203, end: 20231213

REACTIONS (5)
  - Cystitis [Unknown]
  - Ear infection [Unknown]
  - Product quality issue [Unknown]
  - Product odour abnormal [Unknown]
  - Drug ineffective [Unknown]
